FAERS Safety Report 11656839 (Version 5)
Quarter: 2015Q4

REPORT INFORMATION
  Report Type: Report from Study
  Country: US (occurrence: US)
  Receive Date: 20151023
  Receipt Date: 20151028
  Transmission Date: 20160304
  Serious: No
  Sender: FDA-Public Use
  Company Number: US-ABBVIE-15P-163-1420397-00

PATIENT
  Age: 37 Year
  Sex: Female

DRUGS (1)
  1. LUPRON DEPOT [Suspect]
     Active Substance: LEUPROLIDE ACETATE
     Indication: UTERINE LEIOMYOMA
     Route: 030
     Dates: start: 201506

REACTIONS (6)
  - Mood swings [Not Recovered/Not Resolved]
  - Anxiety [Not Recovered/Not Resolved]
  - Myalgia [Recovering/Resolving]
  - Fatigue [Not Recovered/Not Resolved]
  - Chest discomfort [Recovered/Resolved]
  - Vaginal haemorrhage [Recovered/Resolved]

NARRATIVE: CASE EVENT DATE: 201506
